FAERS Safety Report 8317524-7 (Version None)
Quarter: 2012Q2

REPORT INFORMATION
  Report Type: 
  Country: None (occurrence: None)
  Receive Date: 20120425
  Receipt Date: 20120411
  Transmission Date: 20120825
  Serious: Yes (Hospitalization)
  Sender: FDA-Public Use
  Company Number: 12TR004159

PATIENT
  Age: 21 Year
  Sex: Female

DRUGS (2)
  1. VALPROIC ACID [Suspect]
     Indication: COMPLEX PARTIAL SEIZURES
     Dosage: 600 MG, QD, UNKNOWN
  2. PHENYTOIN [Concomitant]

REACTIONS (4)
  - PLACENTA PRAEVIA [None]
  - PREMATURE BABY [None]
  - MATERNAL EXPOSURE DURING PREGNANCY [None]
  - CAESAREAN SECTION [None]
